FAERS Safety Report 6383094-6 (Version None)
Quarter: 2009Q3

REPORT INFORMATION
  Report Type: 
  Country: None (occurrence: None)
  Receive Date: 20090928
  Receipt Date: 20090912
  Transmission Date: 20100115
  Serious: Yes (Other)
  Sender: FDA-Public Use
  Company Number: GXBR2009US01863

PATIENT
  Sex: 0

DRUGS (2)
  1. RIFAMPIN             (RIFAMPICIN) [Suspect]
     Indication: ENDOCARDITIS
  2. CUBICIN [Suspect]
     Indication: ENDOCARDITIS
     Dosage: 8 MG/KG

REACTIONS (3)
  - DRUG INEFFECTIVE [None]
  - ENDOCARDITIS [None]
  - INTERVERTEBRAL DISCITIS [None]
